FAERS Safety Report 7796234-9 (Version None)
Quarter: 2011Q4

REPORT INFORMATION
  Report Type: 
  Country: None (occurrence: None)
  Receive Date: 20111004
  Receipt Date: 20110927
  Transmission Date: 20120403
  Serious: Yes (Other)
  Sender: FDA-Public Use
  Company Number: US-MERCK-1008USA03491

PATIENT
  Age: 37 Year
  Sex: Female

DRUGS (4)
  1. SINGULAIR [Suspect]
     Indication: HYPERSENSITIVITY
     Route: 048
     Dates: start: 20080416
  2. VALTREX [Concomitant]
     Route: 065
  3. RHINOCORT [Concomitant]
     Route: 065
     Dates: start: 20080416
  4. SYNTHROID [Concomitant]
     Route: 065

REACTIONS (2)
  - MATERNAL EXPOSURE DURING PREGNANCY [None]
  - ADVERSE EVENT [None]
